FAERS Safety Report 9149964 (Version 1)
Quarter: 2013Q1

REPORT INFORMATION
  Report Type: Spontaneous
  Country: US (occurrence: None)
  Receive Date: 20130201
  Receipt Date: 20130201
  Transmission Date: 20140127
  Serious: Yes (Other)
  Sender: FDA-Public Use
  Company Number: DAV-AE-NAP-13-02

PATIENT
  Age: 60 Year
  Sex: Male

DRUGS (1)
  1. NAPROXEN [Suspect]

REACTIONS (3)
  - Swollen tongue [None]
  - Oral disorder [None]
  - Swelling [None]
